FAERS Safety Report 7734566-0 (Version None)
Quarter: 2011Q3

REPORT INFORMATION
  Report Type: 
  Country: None (occurrence: None)
  Receive Date: 20110907
  Receipt Date: 20110831
  Transmission Date: 20111222
  Serious: Yes (Other)
  Sender: FDA-Public Use
  Company Number: RU-GLAXOSMITHKLINE-B0745165A

PATIENT
  Sex: Male

DRUGS (1)
  1. ARIXTRA [Suspect]
     Indication: THROMBOSIS PROPHYLAXIS
     Dosage: .6ML PER DAY
     Route: 058
     Dates: start: 20110830

REACTIONS (2)
  - PULMONARY EMBOLISM [None]
  - CONTRAINDICATION TO MEDICAL TREATMENT [None]
